FAERS Safety Report 23888253 (Version 1)
Quarter: 2024Q2

REPORT INFORMATION
  Report Type: Spontaneous
  Country: NL (occurrence: NL)
  Receive Date: 20240523
  Receipt Date: 20240523
  Transmission Date: 20240716
  Serious: Yes (Other)
  Sender: FDA-Public Use
  Company Number: NL-LRB-00972647

PATIENT
  Age: 34 Year
  Sex: Male
  Weight: 87 kg

DRUGS (1)
  1. SERTRALINE [Suspect]
     Active Substance: SERTRALINE HYDROCHLORIDE
     Indication: Persistent postural-perceptual dizziness
     Dosage: 25 MILLIGRAM, ONCE A DAY, 1 PIECE PER DAY
     Route: 065
     Dates: start: 20220801, end: 20231124

REACTIONS (3)
  - Emotional poverty [Not Recovered/Not Resolved]
  - Erectile dysfunction [Recovering/Resolving]
  - Disturbance in sexual arousal [Not Recovered/Not Resolved]
